FAERS Safety Report 6922369-6 (Version None)
Quarter: 2010Q3

REPORT INFORMATION
  Report Type: 
  Country: None (occurrence: None)
  Receive Date: 20100813
  Receipt Date: 20100805
  Transmission Date: 20110219
  Serious: Yes (Hospitalization, Other)
  Sender: FDA-Public Use
  Company Number: DE-JNJFOC-20100608090

PATIENT
  Sex: Female
  Weight: 99.5 kg

DRUGS (12)
  1. DOXORUBICIN HCL [Suspect]
     Indication: MULTIPLE MYELOMA
     Route: 042
     Dates: start: 20100426
  2. VELCADE [Suspect]
     Indication: MULTIPLE MYELOMA
     Route: 042
     Dates: start: 20100426
  3. NEXIUM [Concomitant]
     Route: 065
  4. DEXAMETHASONE [Concomitant]
     Indication: MULTIPLE MYELOMA
     Route: 048
     Dates: start: 20100426
  5. ACYCLOVIR [Concomitant]
     Route: 065
  6. LEVOFLOXACIN [Concomitant]
     Route: 065
  7. L-THYROXIN HENNING [Concomitant]
     Route: 065
  8. QUERTO [Concomitant]
     Route: 065
  9. RAMIPRIL [Concomitant]
     Route: 065
  10. TORASEMID [Concomitant]
     Route: 065
  11. ZOMETA [Concomitant]
     Route: 065
  12. ZOVIRAX [Concomitant]
     Indication: ORAL HERPES
     Route: 065

REACTIONS (3)
  - NEUROPATHY PERIPHERAL [None]
  - PARESIS [None]
  - POLYNEUROPATHY [None]
